FAERS Safety Report 5173428-2 (Version None)
Quarter: 2006Q4

REPORT INFORMATION
  Report Type: 
  Country: None (occurrence: None)
  Receive Date: 20061206
  Receipt Date: 20061106
  Transmission Date: 20070319
  Serious: Yes (Hospitalization, Other)
  Sender: FDA-Public Use
  Company Number: 2006141421

PATIENT
  Sex: Female

DRUGS (1)
  1. CELEBREX [Suspect]
     Dosage: ORAL
     Route: 048
     Dates: start: 20000501, end: 20020902

REACTIONS (4)
  - FATIGUE [None]
  - SCAR [None]
  - STEVENS-JOHNSON SYNDROME [None]
  - VITREOUS DETACHMENT [None]
